FAERS Safety Report 17571617 (Version 2)
Quarter: 2021Q3

REPORT INFORMATION
  Report Type: Spontaneous
  Country: CA (occurrence: CA)
  Receive Date: 20200323
  Receipt Date: 20210826
  Transmission Date: 20211014
  Serious: Yes (Congenital Anomaly, Other)
  Sender: FDA-Public Use
  Company Number: CA-TEVA-2020-CA-1207783

PATIENT
  Age: 52 Year
  Sex: Male

DRUGS (48)
  1. TENOFOVIR DISOPROXIL FUMARATE. [Suspect]
     Active Substance: TENOFOVIR DISOPROXIL FUMARATE
     Indication: HIV INFECTION
     Route: 048
  2. DELAVIRDINE MESYLATE [Suspect]
     Active Substance: DELAVIRDINE MESYLATE
     Route: 048
  3. ENFUVIRTIDE. [Suspect]
     Active Substance: ENFUVIRTIDE
     Indication: HIV INFECTION
     Route: 058
  4. KALETRA [Suspect]
     Active Substance: LOPINAVIR\RITONAVIR
     Route: 065
  5. LAMIVUDINE. [Suspect]
     Active Substance: LAMIVUDINE
     Indication: HIV INFECTION
     Route: 065
  6. DARUNAVIR [Suspect]
     Active Substance: DARUNAVIR
     Indication: ANTIRETROVIRAL THERAPY
     Route: 048
  7. NELFINAVIR MESILATE [Suspect]
     Active Substance: NELFINAVIR MESYLATE
     Indication: HIV INFECTION
     Route: 065
  8. NORVIR [Suspect]
     Active Substance: RITONAVIR
     Indication: HIV INFECTION
     Route: 065
  9. RALTEGRAVIR POTASSIUM [Suspect]
     Active Substance: RALTEGRAVIR POTASSIUM
     Route: 065
  10. ABACAVIR SUPLHATE [Suspect]
     Active Substance: ABACAVIR SULFATE
     Indication: PRODUCT USED FOR UNKNOWN INDICATION
     Route: 065
  11. ABACAVIR SULFATE. [Suspect]
     Active Substance: ABACAVIR SULFATE
     Route: 048
  12. LOPINAVIR [Suspect]
     Active Substance: LOPINAVIR
     Indication: HIV INFECTION
     Route: 065
  13. VIREAD [Suspect]
     Active Substance: TENOFOVIR DISOPROXIL FUMARATE
     Indication: HIV INFECTION
     Route: 048
  14. DELAVIRDINE MESYLATE [Suspect]
     Active Substance: DELAVIRDINE MESYLATE
     Indication: HIV INFECTION
     Route: 065
  15. ETRAVIRINE [Suspect]
     Active Substance: ETRAVIRINE
     Indication: HIV INFECTION
     Route: 048
  16. SAQUINAVIR [Suspect]
     Active Substance: SAQUINAVIR
     Route: 065
  17. VIDEX EC [Suspect]
     Active Substance: DIDANOSINE
     Route: 048
  18. ABACAVIR SULFATE. [Suspect]
     Active Substance: ABACAVIR SULFATE
     Route: 065
  19. DARUNAVIR [Suspect]
     Active Substance: DARUNAVIR
     Indication: HIV INFECTION
     Route: 065
  20. ENFUVIRTIDE. [Suspect]
     Active Substance: ENFUVIRTIDE
     Indication: ANTIRETROVIRAL THERAPY
     Route: 065
  21. NEVIRAPINE. [Suspect]
     Active Substance: NEVIRAPINE
     Route: 048
  22. ZERIT [Suspect]
     Active Substance: STAVUDINE
     Route: 016
  23. ZIDOVUDINE. [Suspect]
     Active Substance: ZIDOVUDINE
     Indication: HIV INFECTION
     Route: 048
  24. ABACAVIR SUPLHATE [Suspect]
     Active Substance: ABACAVIR SULFATE
     Indication: ANTIRETROVIRAL THERAPY
     Route: 065
  25. ABACAVIR SUPLHATE [Suspect]
     Active Substance: ABACAVIR SULFATE
     Route: 048
  26. ABACAVIR SUPLHATE [Suspect]
     Active Substance: ABACAVIR SULFATE
     Route: 048
  27. ABACAVIR SULFATE. [Suspect]
     Active Substance: ABACAVIR SULFATE
     Indication: HIV INFECTION
     Route: 065
  28. ABACAVIR SULFATE. [Suspect]
     Active Substance: ABACAVIR SULFATE
     Route: 065
  29. INTELENCE [Suspect]
     Active Substance: ETRAVIRINE
     Indication: HIV INFECTION
     Route: 048
  30. LOPINAVIR/RITONAVIR [Suspect]
     Active Substance: LOPINAVIR\RITONAVIR
     Indication: HIV INFECTION
     Route: 065
  31. NELFINAVIR MESILATE [Suspect]
     Active Substance: NELFINAVIR MESYLATE
     Route: 048
  32. NEVIRAPINE. [Suspect]
     Active Substance: NEVIRAPINE
     Indication: HIV INFECTION
     Route: 065
  33. RITONAVIR. [Suspect]
     Active Substance: RITONAVIR
     Route: 016
  34. SUSTIVA [Suspect]
     Active Substance: EFAVIRENZ
     Indication: HIV INFECTION
     Route: 048
  35. VIDEX EC [Suspect]
     Active Substance: DIDANOSINE
     Indication: HIV INFECTION
     Route: 048
  36. ABACAVIR SUPLHATE [Suspect]
     Active Substance: ABACAVIR SULFATE
     Route: 048
  37. DELAVIRDINE MESYLATE [Suspect]
     Active Substance: DELAVIRDINE MESYLATE
     Route: 048
  38. DIDANOSINE. [Suspect]
     Active Substance: DIDANOSINE
     Indication: HIV INFECTION
     Route: 065
  39. KALETRA [Suspect]
     Active Substance: LOPINAVIR\RITONAVIR
     Route: 016
  40. RALTEGRAVIR POTASSIUM [Suspect]
     Active Substance: RALTEGRAVIR POTASSIUM
     Indication: HIV INFECTION
     Route: 048
  41. RALTEGRAVIR POTASSIUM [Suspect]
     Active Substance: RALTEGRAVIR POTASSIUM
     Route: 065
  42. RITONAVIR. [Suspect]
     Active Substance: RITONAVIR
     Indication: HIV INFECTION
     Route: 065
  43. ZIDOVUDINE. [Suspect]
     Active Substance: ZIDOVUDINE
     Route: 065
  44. ABACAVIR SUPLHATE [Suspect]
     Active Substance: ABACAVIR SULFATE
     Route: 065
  45. INDINAVIR SULFATE [Suspect]
     Active Substance: INDINAVIR SULFATE
     Indication: HIV INFECTION
     Route: 048
  46. KALETRA [Suspect]
     Active Substance: LOPINAVIR\RITONAVIR
     Indication: HIV INFECTION
     Route: 048
  47. SAQUINAVIR [Suspect]
     Active Substance: SAQUINAVIR
     Indication: HIV INFECTION
     Route: 048
  48. ZERIT [Suspect]
     Active Substance: STAVUDINE
     Indication: HIV INFECTION
     Route: 065

REACTIONS (9)
  - Diplopia [Unknown]
  - Eyelid ptosis [Unknown]
  - Blood lactic acid increased [Unknown]
  - Extraocular muscle paresis [Unknown]
  - Lipodystrophy acquired [Unknown]
  - Dysphagia [Unknown]
  - Mitochondrial toxicity [Unknown]
  - Progressive external ophthalmoplegia [Unknown]
  - Ophthalmoplegia [Unknown]
